FAERS Safety Report 7571705-9 (Version None)
Quarter: 2011Q2

REPORT INFORMATION
  Report Type: 
  Country: None (occurrence: None)
  Receive Date: 20110624
  Receipt Date: 20110617
  Transmission Date: 20111010
  Serious: Yes (Other)
  Sender: FDA-Public Use
  Company Number: US-CEPHALON-2011003149

PATIENT
  Sex: Female
  Weight: 68 kg

DRUGS (2)
  1. PROVIGIL [Suspect]
     Indication: NARCOLEPSY
     Route: 048
     Dates: start: 20040101, end: 20101201
  2. PROVIGIL [Suspect]
     Route: 048
     Dates: start: 20101201

REACTIONS (11)
  - SKIN EXFOLIATION [None]
  - ANORECTAL DISORDER [None]
  - ERYTHEMA [None]
  - FACE OEDEMA [None]
  - PRURITUS [None]
  - VAGINAL LESION [None]
  - CONTUSION [None]
  - HYPERSENSITIVITY [None]
  - STEVENS-JOHNSON SYNDROME [None]
  - PAIN [None]
  - RASH [None]
